FAERS Safety Report 10613912 (Version 2)
Quarter: 2014Q4

REPORT INFORMATION
  Report Type: Spontaneous
  Country: US (occurrence: US)
  Receive Date: 20141128
  Receipt Date: 20141205
  Transmission Date: 20150529
  Serious: Yes (Death, Hospitalization)
  Sender: FDA-Public Use
  Company Number: US-ACTELION-A-US2014-108850

PATIENT
  Age: 70 Year
  Sex: Female

DRUGS (1)
  1. TRACLEER [Suspect]
     Active Substance: BOSENTAN\BOSENTAN MONOHYDRATE
     Indication: PULMONARY ARTERIAL HYPERTENSION
     Dosage: 125 MG, BID
     Route: 048
     Dates: end: 20141118

REACTIONS (8)
  - Intervertebral disc disorder [Not Recovered/Not Resolved]
  - Dyspnoea [Fatal]
  - Coronary artery disease [Fatal]
  - Musculoskeletal pain [Not Recovered/Not Resolved]
  - Oxygen saturation abnormal [Fatal]
  - Condition aggravated [Not Recovered/Not Resolved]
  - Pulmonary hypertension [Fatal]
  - Oedema peripheral [Not Recovered/Not Resolved]

NARRATIVE: CASE EVENT DATE: 20041118
